FAERS Safety Report 24205662 (Version 3)
Quarter: 2024Q3

REPORT INFORMATION
  Report Type: Spontaneous
  Country: US (occurrence: US)
  Receive Date: 20240813
  Receipt Date: 20240903
  Transmission Date: 20241017
  Serious: Yes (Other)
  Sender: BAYER
  Company Number: US-BAYER-2024A112439

PATIENT
  Age: 74 Year
  Sex: Female

DRUGS (3)
  1. KERENDIA [Suspect]
     Active Substance: FINERENONE
     Dosage: 10 MG, QD
  2. KERENDIA [Suspect]
     Active Substance: FINERENONE
     Dosage: 20 MG, QD
  3. CALCIUM CITRATE\VITAMIN D [Suspect]
     Active Substance: CALCIUM CITRATE\VITAMIN D

REACTIONS (4)
  - Haematochezia [Recovered/Resolved]
  - Urine output fluctuation [Recovered/Resolved]
  - Glomerular filtration rate increased [None]
  - Faeces hard [Recovered/Resolved]

NARRATIVE: CASE EVENT DATE: 20240729
